FAERS Safety Report 17114438 (Version 1)
Quarter: 2019Q4

REPORT INFORMATION
  Report Type: Spontaneous
  Country: US (occurrence: US)
  Receive Date: 20191112
  Receipt Date: 20191112
  Transmission Date: 20200122
  Serious: Yes (Other)
  Sender: FDA-Public Use
  Company Number: None

PATIENT
  Age: 60 Year
  Sex: Female
  Weight: 58.97 kg

DRUGS (2)
  1. BUPROPION HCL SR 100MG [Suspect]
     Active Substance: BUPROPION HYDROCHLORIDE
     Indication: MAJOR DEPRESSION
     Dosage: ?          OTHER FREQUENCY:2 BID;?
     Route: 048
     Dates: start: 201901, end: 201902
  2. BUPROPION HCL SR 100MG [Suspect]
     Active Substance: BUPROPION HYDROCHLORIDE
     Dosage: ?          OTHER FREQUENCY:2 BID ;?

REACTIONS (3)
  - Treatment failure [None]
  - Disease recurrence [None]
  - Product substitution issue [None]

NARRATIVE: CASE EVENT DATE: 20190303
